FAERS Safety Report 11155057 (Version 1)
Quarter: 2015Q2

REPORT INFORMATION
  Report Type: Spontaneous
  Country: US (occurrence: None)
  Receive Date: 20150601
  Receipt Date: 20150601
  Transmission Date: 20150821
  Serious: Yes (Other)
  Sender: FDA-Public Use
  Company Number: None

PATIENT
  Sex: Female
  Weight: 30 kg

DRUGS (1)
  1. LEVOTHYROXINE 112 MCG TAB [Suspect]
     Active Substance: LEVOTHYROXINE

REACTIONS (3)
  - Headache [None]
  - Muscular weakness [None]
  - Palpitations [None]
